FAERS Safety Report 14896076 (Version 1)
Quarter: 2018Q2

REPORT INFORMATION
  Report Type: Spontaneous
  Country: US (occurrence: US)
  Receive Date: 20180427
  Receipt Date: 20180427
  Transmission Date: 20180711
  Serious: Yes (Hospitalization)
  Sender: FDA-Public Use
  Company Number: None

PATIENT
  Age: 11 Year
  Sex: Male
  Weight: 68.5 kg

DRUGS (9)
  1. METHOTREXATE. [Suspect]
     Active Substance: METHOTREXATE
     Dates: end: 20180327
  2. DOXORUBICIN HYDROCHLORIDE. [Suspect]
     Active Substance: DOXORUBICIN HYDROCHLORIDE
     Dates: end: 20180221
  3. AMPICILLIN [Concomitant]
     Active Substance: AMPICILLIN
  4. CYTARABINE. [Suspect]
     Active Substance: CYTARABINE
     Dates: end: 20180327
  5. ONCASPAR [Suspect]
     Active Substance: PEGASPARGASE
     Dates: end: 20180404
  6. VINCRISTINE SULFATE. [Suspect]
     Active Substance: VINCRISTINE SULFATE
     Dates: end: 20180410
  7. GENTAMYCIN [Concomitant]
     Active Substance: GENTAMICIN
  8. CYCLOPHOSPHAMIDE. [Suspect]
     Active Substance: CYCLOPHOSPHAMIDE
     Dates: end: 20180319
  9. THIOGUANINE (6-TG) [Suspect]
     Active Substance: THIOGUANINE ANHYDROUS
     Dates: end: 20180402

REACTIONS (16)
  - Neutropenia [None]
  - Pancreatitis [None]
  - Hypokalaemia [None]
  - Hyponatraemia [None]
  - Activated partial thromboplastin time prolonged [None]
  - Dialysis [None]
  - Bacteraemia [None]
  - Multiple organ dysfunction syndrome [None]
  - Pyrexia [None]
  - Cholecystitis [None]
  - Acute kidney injury [None]
  - Drug eruption [None]
  - International normalised ratio increased [None]
  - Renal failure [None]
  - Hypophosphataemia [None]
  - Listeriosis [None]

NARRATIVE: CASE EVENT DATE: 20180423
